FAERS Safety Report 6861520-3 (Version None)
Quarter: 2010Q3

REPORT INFORMATION
  Report Type: 
  Country: None (occurrence: None)
  Receive Date: 20100720
  Receipt Date: 20100712
  Transmission Date: 20110219
  Serious: Yes (Other)
  Sender: FDA-Public Use
  Company Number: US-BRISTOL-MYERS SQUIBB COMPANY-15195068

PATIENT
  Age: 2 Year
  Sex: Female

DRUGS (6)
  1. CYCLOPHOSPHAMIDE [Suspect]
  2. PHENYTOIN [Suspect]
     Indication: CONVULSION PROPHYLAXIS
  3. CYCLOSPORINE [Suspect]
     Indication: IMMUNOSUPPRESSANT DRUG THERAPY
  4. PREDNISONE [Suspect]
     Indication: IMMUNOSUPPRESSANT DRUG THERAPY
  5. BUSULFAN [Suspect]
  6. MESNA [Concomitant]

REACTIONS (1)
  - GRAFT VERSUS HOST DISEASE [None]
